FAERS Safety Report 8542598-8 (Version None)
Quarter: 2012Q3

REPORT INFORMATION
  Report Type: 
  Country: None (occurrence: None)
  Receive Date: 20120726
  Receipt Date: 20120723
  Transmission Date: 20120928
  Serious: No
  Sender: FDA-Public Use
  Company Number: US-009507513-1207USA008987

PATIENT

DRUGS (3)
  1. ARANESP (ALBUMIN HUMAN (+) DARBEPOETIN ALFA) [Concomitant]
  2. PEG-INTRON [Suspect]
     Indication: HEPATITIS C
     Dosage: 120 MICROGRAM, QW
     Route: 058
     Dates: start: 20111206
  3. RIBAVIRIN [Suspect]

REACTIONS (1)
  - HEPATITIS C [None]
